FAERS Safety Report 7995579-7 (Version None)
Quarter: 2011Q4

REPORT INFORMATION
  Report Type: 
  Country: None (occurrence: None)
  Receive Date: 20111220
  Receipt Date: 20111207
  Transmission Date: 20120403
  Serious: Yes (Hospitalization, Other)
  Sender: FDA-Public Use
  Company Number: CA-MERCK-1112USA00944

PATIENT
  Age: 78 Year
  Sex: Male
  Weight: 74 kg

DRUGS (6)
  1. COUMADIN [Concomitant]
     Route: 048
  2. NIFEDIPINE [Concomitant]
     Route: 048
  3. SEPTRA DS [Suspect]
     Route: 048
  4. INVANZ [Suspect]
     Route: 042
  5. GABAPENTIN [Concomitant]
     Route: 048
  6. PERINDOPRIL [Concomitant]
     Route: 048

REACTIONS (3)
  - RASH ERYTHEMATOUS [None]
  - LEUKOCYTOCLASTIC VASCULITIS [None]
  - RASH PRURITIC [None]
